FAERS Safety Report 13748885 (Version 1)
Quarter: 2017Q3

REPORT INFORMATION
  Report Type: Spontaneous
  Country: FR (occurrence: FR)
  Receive Date: 20170713
  Receipt Date: 20170713
  Transmission Date: 20171127
  Serious: Yes (Life-Threatening, Hospitalization)
  Sender: FDA-Public Use
  Company Number: FR-TEVA-784971ROM

PATIENT
  Age: 34 Year
  Sex: Male
  Weight: 80 kg

DRUGS (6)
  1. MITOXANTRONE TEVA 20 MG/10ML [Suspect]
     Active Substance: MITOXANTRONE HYDROCHLORIDE
     Indication: ACUTE MYELOID LEUKAEMIA
     Dosage: PROTOCOL EMA FROM DAY 1 TO DAY 3
     Route: 041
     Dates: start: 20151211, end: 20151213
  2. DEPO-MEDROL [Suspect]
     Active Substance: METHYLPREDNISOLONE ACETATE
     Indication: ACUTE MYELOID LEUKAEMIA
     Dosage: TRIPLE LUMBAR PUNCTURE
     Route: 024
     Dates: start: 20151211, end: 20151211
  3. ETOPOSIDE TEVA 20 MG/ML [Suspect]
     Active Substance: ETOPOSIDE
     Indication: ACUTE MYELOID LEUKAEMIA
     Dosage: PROTOCOL EMA FROM DAY 8 TO DAY 10
     Route: 041
     Dates: start: 20151218, end: 20151220
  4. CYTARABINE SANDOZ 100 MG/ML [Suspect]
     Active Substance: CYTARABINE
     Indication: ACUTE MYELOID LEUKAEMIA
     Dosage: PROTOCOL EMA FROM DAY 1 TO DAY 3 AND DAY 8 TO DAY 10
     Route: 042
     Dates: start: 20151211, end: 20151220
  5. METHOTREXATE BIODIM 25 MG/ML [Suspect]
     Active Substance: METHOTREXATE SODIUM
     Indication: ACUTE MYELOID LEUKAEMIA
     Dosage: TRIPLE LUMBAR PUNCTURE
     Route: 024
     Dates: start: 20151211, end: 20151211
  6. ARACYTINE 100 MG [Suspect]
     Active Substance: CYTARABINE
     Indication: ACUTE MYELOID LEUKAEMIA
     Dosage: TRIPLE LUMBAR PUNCTURE
     Route: 024
     Dates: start: 20151211, end: 20151211

REACTIONS (4)
  - Systemic candida [Recovered/Resolved]
  - Sepsis [Recovered/Resolved]
  - Bone marrow failure [Recovered/Resolved]
  - Pseudomonal bacteraemia [Recovered/Resolved]

NARRATIVE: CASE EVENT DATE: 20151221
